FAERS Safety Report 15322117 (Version 1)
Quarter: 2018Q3

REPORT INFORMATION
  Report Type: Spontaneous
  Country: US (occurrence: US)
  Receive Date: 20180821
  Receipt Date: 20180821
  Transmission Date: 20181010
  Serious: Yes (Disabling)
  Sender: FDA-Public Use
  Company Number: None

PATIENT
  Age: 84 Year
  Sex: Female
  Weight: 70.31 kg

DRUGS (16)
  1. LEVOFLOXACIN (500MG) (FOR) LEVAQUIN 500 MG [Suspect]
     Active Substance: LEVOFLOXACIN
     Indication: CHEST X-RAY ABNORMAL
     Dosage: 1 PILL A DAY MORNING; MOUTH?
     Route: 048
     Dates: start: 20180723, end: 20180728
  2. LEVOFLOXACIN (500MG) (FOR) LEVAQUIN 500 MG [Suspect]
     Active Substance: LEVOFLOXACIN
     Indication: PNEUMONIA
     Dosage: 1 PILL A DAY MORNING; MOUTH?
     Route: 048
     Dates: start: 20180723, end: 20180728
  3. ATORVASTATIN [Concomitant]
     Active Substance: ATORVASTATIN
  4. ASPRIN [Concomitant]
     Active Substance: ASPIRIN
  5. LEVOFLOXACIN (500MG) (FOR) LEVAQUIN 500 MG [Suspect]
     Active Substance: LEVOFLOXACIN
     Indication: MALAISE
     Dosage: 1 PILL A DAY MORNING; MOUTH?
     Route: 048
     Dates: start: 20180723, end: 20180728
  6. NABUMETONE. [Concomitant]
     Active Substance: NABUMETONE
  7. MELATONIN [Concomitant]
     Active Substance: MELATONIN
  8. LEVOFLOXACIN (500MG) (FOR) LEVAQUIN 500 MG [Suspect]
     Active Substance: LEVOFLOXACIN
     Indication: ASTHENIA
     Dosage: 1 PILL A DAY MORNING; MOUTH?
     Route: 048
     Dates: start: 20180723, end: 20180728
  9. LOSARTAN. [Concomitant]
     Active Substance: LOSARTAN
  10. PANTORAZOLE [Concomitant]
  11. GLOCOSAMINE CONDROTIN [Concomitant]
  12. FANOTIDINE [Concomitant]
  13. MIRALAX [Concomitant]
     Active Substance: POLYETHYLENE GLYCOL 3350
  14. CENTRUM SILVER VIT [Concomitant]
  15. VITAMIN D [Concomitant]
     Active Substance: CHOLECALCIFEROL
  16. LEVOFLOXACIN (500MG) (FOR) LEVAQUIN 500 MG [Suspect]
     Active Substance: LEVOFLOXACIN
     Indication: URINARY TRACT INFECTION
     Dosage: 1 PILL A DAY MORNING; MOUTH?
     Route: 048
     Dates: start: 20180723, end: 20180728

REACTIONS (4)
  - Intentional product use issue [None]
  - Pain in extremity [None]
  - Joint range of motion decreased [None]
  - Agitation [None]

NARRATIVE: CASE EVENT DATE: 20180708
